FAERS Safety Report 17691431 (Version 1)
Quarter: 2020Q2

REPORT INFORMATION
  Report Type: Report from Study
  Country: US (occurrence: US)
  Receive Date: 20200422
  Receipt Date: 20200422
  Transmission Date: 20200714
  Serious: Yes (Other)
  Sender: FDA-Public Use
  Company Number: US-ROCHE-2583383

PATIENT
  Sex: Female

DRUGS (1)
  1. OCREVUS [Suspect]
     Active Substance: OCRELIZUMAB
     Indication: RELAPSING-REMITTING MULTIPLE SCLEROSIS
     Dosage: DATE OF INFUSION: 01/MAY/2019
     Route: 065
     Dates: start: 20190416

REACTIONS (1)
  - Coronavirus infection [Recovering/Resolving]

NARRATIVE: CASE EVENT DATE: 2020
